FAERS Safety Report 4314887-4 (Version None)
Quarter: 2004Q1

REPORT INFORMATION
  Report Type: 
  Country: None (occurrence: None)
  Receive Date: 20040310
  Receipt Date: 20040310
  Transmission Date: 20041129
  Serious: Yes (Hospitalization)
  Sender: FDA-Public Use
  Company Number: None

PATIENT
  Sex: Male
  Weight: 105.2345 kg

DRUGS (2)
  1. CELEBREX [Suspect]
     Indication: PANCREATIC CARCINOMA
     Dosage: 400 MG BID ORAL
     Route: 048
     Dates: start: 20040212, end: 20040225
  2. GEMCITABINE [Suspect]

REACTIONS (2)
  - DIZZINESS [None]
  - GASTROINTESTINAL HAEMORRHAGE [None]
